FAERS Safety Report 16225111 (Version 1)
Quarter: 2019Q2

REPORT INFORMATION
  Report Type: Spontaneous
  Country: FR (occurrence: FR)
  Receive Date: 20190422
  Receipt Date: 20190422
  Transmission Date: 20190711
  Serious: Yes (Hospitalization, Other)
  Sender: FDA-Public Use
  Company Number: FR-009507513-1904FRA008682

PATIENT
  Age: 11 Year
  Sex: Female

DRUGS (4)
  1. SERETIDE [Concomitant]
     Active Substance: FLUTICASONE PROPIONATE\SALMETEROL XINAFOATE
     Indication: MITE ALLERGY
  2. SERETIDE [Concomitant]
     Active Substance: FLUTICASONE PROPIONATE\SALMETEROL XINAFOATE
     Indication: ASTHMA
     Dosage: UNK, MORNING AND EVENING
  3. AERIUS (DESLORATADINE) [Suspect]
     Active Substance: DESLORATADINE
     Indication: ASTHMA
     Dosage: 1 TABLET EVERY EVENING
     Route: 048
     Dates: start: 2016
  4. AERIUS (DESLORATADINE) [Suspect]
     Active Substance: DESLORATADINE
     Indication: MITE ALLERGY

REACTIONS (8)
  - Coeliac disease [Unknown]
  - Headache [Unknown]
  - Product administered to patient of inappropriate age [Unknown]
  - Fatigue [Unknown]
  - Product use in unapproved indication [Unknown]
  - Adverse event [Unknown]
  - Migraine [Unknown]
  - Depression [Unknown]

NARRATIVE: CASE EVENT DATE: 2016
